FAERS Safety Report 25623182 (Version 2)
Quarter: 2025Q3

REPORT INFORMATION
  Report Type: Spontaneous
  Country: US (occurrence: US)
  Receive Date: 20250730
  Receipt Date: 20250827
  Transmission Date: 20251020
  Serious: Yes (Hospitalization, Other)
  Sender: BRISTOL-MYERS SQUIBB COMPANY
  Company Number: US-BRISTOL-MYERS SQUIBB COMPANY-2025-106136

PATIENT
  Age: 78 Year
  Sex: Female
  Weight: 71.21 kg

DRUGS (9)
  1. ELIQUIS [Suspect]
     Active Substance: APIXABAN
     Indication: Product used for unknown indication
  2. TYVASO [Suspect]
     Active Substance: TREPROSTINIL
     Indication: Pulmonary arterial hypertension
     Dosage: QID
     Route: 055
     Dates: start: 202502
  3. TYVASO [Suspect]
     Active Substance: TREPROSTINIL
     Route: 055
     Dates: start: 20250214
  4. TYVASO [Suspect]
     Active Substance: TREPROSTINIL
     Route: 055
     Dates: start: 2025
  5. AMBRISENTAN [Suspect]
     Active Substance: AMBRISENTAN
     Indication: Pulmonary arterial hypertension
     Dosage: QD
     Route: 048
     Dates: start: 20250411
  6. ADEMPAS [Suspect]
     Active Substance: RIOCIGUAT
     Indication: Product used for unknown indication
  7. DILTIAZEM HYDROCHLORIDE [Concomitant]
     Active Substance: DILTIAZEM HYDROCHLORIDE
     Indication: Product used for unknown indication
  8. VITAMINS [Concomitant]
     Active Substance: VITAMINS
     Indication: Product used for unknown indication
  9. SPIRONOLACTONE [Concomitant]
     Active Substance: SPIRONOLACTONE
     Indication: Product used for unknown indication

REACTIONS (13)
  - Pulmonary thrombosis [Unknown]
  - Diverticulitis [Not Recovered/Not Resolved]
  - Oxygen saturation decreased [Not Recovered/Not Resolved]
  - Cough [Unknown]
  - Post-tussive vomiting [Unknown]
  - Dyspnoea [Unknown]
  - Asthenia [Recovering/Resolving]
  - Seasonal allergy [Unknown]
  - COVID-19 [Unknown]
  - Hypotension [Unknown]
  - Diastolic hypotension [Unknown]
  - Nasal discomfort [Not Recovered/Not Resolved]
  - Gait inability [Recovered/Resolved]

NARRATIVE: CASE EVENT DATE: 20250101
